FAERS Safety Report 10551922 (Version 2)
Quarter: 2014Q4

REPORT INFORMATION
  Report Type: Spontaneous
  Country: BE (occurrence: BE)
  Receive Date: 20141029
  Receipt Date: 20141125
  Transmission Date: 20150529
  Serious: Yes (Hospitalization, Other)
  Sender: FDA-Public Use
  Company Number: BE-ASTRAZENECA-2014SE80648

PATIENT
  Sex: Male

DRUGS (5)
  1. SIMVASTATINE [Concomitant]
     Active Substance: SIMVASTATIN
  2. BRILIQUE [Suspect]
     Active Substance: TICAGRELOR
     Route: 048
     Dates: start: 20140224, end: 20140606
  3. ALLOPURINOL. [Concomitant]
     Active Substance: ALLOPURINOL
  4. ASAFLOW [Concomitant]
     Active Substance: ASPIRIN
  5. EMCONCOR [Concomitant]
     Active Substance: BISOPROLOL FUMARATE

REACTIONS (4)
  - Dyspnoea [Recovered/Resolved]
  - Loss of consciousness [Unknown]
  - Presyncope [Recovered/Resolved]
  - Cardio-respiratory arrest [Unknown]

NARRATIVE: CASE EVENT DATE: 2014
